FAERS Safety Report 6520862-1 (Version None)
Quarter: 2009Q4

REPORT INFORMATION
  Report Type: 
  Country: None (occurrence: None)
  Receive Date: 20091229
  Receipt Date: 20091214
  Transmission Date: 20100525
  Serious: Yes (Death, Hospitalization, Other)
  Sender: FDA-Public Use
  Company Number: FR-JNJFOC-20090105920

PATIENT
  Sex: Female

DRUGS (9)
  1. DOXORUBICIN HCL [Suspect]
     Indication: BREAST CANCER METASTATIC
     Route: 042
  2. COZAAR [Concomitant]
     Route: 065
  3. MORPHINE [Concomitant]
     Route: 065
  4. MOTILIUM [Concomitant]
     Route: 065
  5. FORLAX [Concomitant]
     Dosage: 4000
     Route: 065
  6. IMOVANE [Concomitant]
     Route: 065
  7. OSTRAM [Concomitant]
     Route: 065
  8. KARDEGIC [Concomitant]
     Dosage: 75
     Route: 065
  9. PIRIDOXIN [Concomitant]
     Route: 065

REACTIONS (3)
  - FEMORAL NECK FRACTURE [None]
  - GENERAL PHYSICAL HEALTH DETERIORATION [None]
  - LUNG INFECTION [None]
